FAERS Safety Report 22189722 (Version 1)
Quarter: 2023Q2

REPORT INFORMATION
  Report Type: Spontaneous
  Country: EG (occurrence: None)
  Receive Date: 20230410
  Receipt Date: 20230410
  Transmission Date: 20230721
  Serious: Yes (Hospitalization)
  Sender: FDA-Public Use
  Company Number: 2023A079403

PATIENT
  Sex: Female

DRUGS (1)
  1. LYNPARZA [Suspect]
     Active Substance: OLAPARIB
     Dosage: 2.0DF UNKNOWN
     Route: 048

REACTIONS (4)
  - C-reactive protein increased [Unknown]
  - White blood cell count increased [Unknown]
  - Wound infection [Unknown]
  - Anaemia [Unknown]
